FAERS Safety Report 8951593 (Version 1)
Quarter: 2012Q4

REPORT INFORMATION
  Report Type: 
  Country: FR (occurrence: FR)
  Receive Date: 20121204
  Receipt Date: 20121204
  Transmission Date: 20130627
  Serious: Yes (Hospitalization, Other)
  Sender: FDA-Public Use
  Company Number: FR-PFIZER INC-2012301934

PATIENT
  Age: 71 Year
  Sex: Male

DRUGS (11)
  1. ONDANSETRON HCL [Suspect]
     Indication: CHEMOTHERAPY INDUCTED EMESIS PROPHYLAXIS
     Dosage: UNK
     Route: 048
     Dates: start: 20120322, end: 20120325
  2. CISPLATIN [Suspect]
     Indication: CHEMOTHERAPY
     Dosage: 143 mg, UNK
     Route: 042
     Dates: start: 20120322, end: 20120322
  3. PREDNISOLONE [Suspect]
     Indication: DRUG USE FOR UNKNOWN INDICATION
     Dosage: 100 mg, UNK
     Route: 048
     Dates: start: 20120321, end: 20120323
  4. DOCETAXEL [Suspect]
     Indication: CHEMOTHERAPY
     Dosage: 144 mg, UNK
     Route: 042
     Dates: start: 20120322, end: 20120322
  5. DOMPERIDONE [Suspect]
     Indication: DRUG USE FOR UNKNOWN INDICATION
     Dosage: 10 mg, 2x/day
     Route: 048
     Dates: start: 201202, end: 20120320
  6. EMEND [Suspect]
     Dosage: 125 mg, per day
     Route: 048
     Dates: start: 20120322, end: 20120325
  7. OXINORM [Suspect]
     Indication: DRUG USE FOR UNKNOWN INDICATION
     Dosage: 10 mg, UNK
     Route: 048
     Dates: start: 20120307, end: 20120322
  8. LENOGRASTIM [Suspect]
     Dosage: UNK
     Route: 058
     Dates: start: 20120322, end: 20120325
  9. ISOPTIN [Suspect]
     Dosage: 120 mg,  per day
     Route: 048
     Dates: start: 20120109, end: 20120322
  10. AMIODARONE [Concomitant]
     Dosage: UNK
  11. DIFFU K [Concomitant]
     Dosage: UNK

REACTIONS (3)
  - Pancreatitis necrotising [Recovered/Resolved]
  - Decreased appetite [Recovered/Resolved]
  - Vomiting [Recovered/Resolved]
